FAERS Safety Report 25723689 (Version 1)
Quarter: 2025Q3

REPORT INFORMATION
  Report Type: Spontaneous
  Country: US (occurrence: US)
  Receive Date: 20250825
  Receipt Date: 20250825
  Transmission Date: 20251020
  Serious: No
  Sender: NOVARTIS
  Company Number: US-002147023-NVSC2025US128539

PATIENT
  Age: 40 Year
  Sex: Male

DRUGS (1)
  1. FABHALTA [Suspect]
     Active Substance: IPTACOPAN HYDROCHLORIDE
     Indication: Product used for unknown indication
     Route: 065

REACTIONS (2)
  - Dermatitis acneiform [Recovering/Resolving]
  - Nausea [Unknown]
